FAERS Safety Report 20095720 (Version 2)
Quarter: 2022Q1

REPORT INFORMATION
  Report Type: Spontaneous
  Country: US (occurrence: US)
  Receive Date: 20211122
  Receipt Date: 20220217
  Transmission Date: 20220423
  Serious: Yes (Death, Hospitalization, Other)
  Sender: FDA-Public Use
  Company Number: US-MACLEODS PHARMACEUTICALS US LTD-MAC2021033413

PATIENT

DRUGS (18)
  1. LIDOCAINE [Suspect]
     Active Substance: LIDOCAINE
     Indication: Cancer pain
     Dosage: LOADING DOSE OF 2 MILLIGRAM/KILOGRAM, INFUSION
     Route: 042
  2. LIDOCAINE [Suspect]
     Active Substance: LIDOCAINE
     Indication: Neuralgia
     Dosage: UNK, FOLLOWED BY A CONTINUOUS INFUSION OF (1MG/KG/HOUR),
     Route: 042
  3. LIDOCAINE [Suspect]
     Active Substance: LIDOCAINE
     Dosage: UNK, TITRATED TO MAX.  (1.6MG/KG/HOUR ON HD 17), INFUSION
     Route: 065
  4. LIDOCAINE [Suspect]
     Active Substance: LIDOCAINE
     Dosage: UNK DECREASED TO (1MG/KG/HOUR), INFUSION
     Route: 065
  5. LIDOCAINE [Suspect]
     Active Substance: LIDOCAINE
     Dosage: UNK (HOSPICE ON A REDUCED DOSE CONTINUOUS LIDOCAINE), INFUSION
     Route: 065
  6. DEXAMETHASONE [Suspect]
     Active Substance: DEXAMETHASONE
     Indication: Spinal cord compression
     Dosage: 10 MILLIGRAM, EVERY MORNING (QAM), ON HD 20
     Route: 042
  7. DEXAMETHASONE [Suspect]
     Active Substance: DEXAMETHASONE
     Dosage: 10 MILLIGRAM, TID, INCREASED TO 10 MG IV Q8 HOURS
     Route: 042
  8. DEXAMETHASONE [Suspect]
     Active Substance: DEXAMETHASONE
     Dosage: UNK (REDUCED TO ONCE DAILY DOSING)
     Route: 065
  9. KETAMINE [Concomitant]
     Active Substance: KETAMINE
     Indication: Cancer pain
     Dosage: UNK, TITRATED UP TO 0.3 MG/KG/HOUR
     Route: 065
  10. DULOXETINE [Concomitant]
     Active Substance: DULOXETINE
     Indication: Cancer pain
     Dosage: 60 MILLIGRAM, QAM
     Route: 048
  11. ACETAMINOPHEN [Concomitant]
     Active Substance: ACETAMINOPHEN
     Indication: Cancer pain
     Dosage: 1000 MILLIGRAM, TID,  Q8 HOURS
     Route: 048
  12. METHADONE [Concomitant]
     Active Substance: METHADONE HYDROCHLORIDE
     Indication: Cancer pain
     Dosage: UNK, TID, 20/20/30 MILLIGRAM
     Route: 048
  13. METHOCARBAMOL [Concomitant]
     Active Substance: METHOCARBAMOL
     Indication: Cancer pain
     Dosage: 750 MILLIGRAM, QID
     Route: 048
  14. FENTANYL [Concomitant]
     Active Substance: FENTANYL
     Indication: Cancer pain
     Dosage: UNK, UP TO 150 MICROGRAM Q10 MINUTES PRN WITH A 25 MCG/HOUR BASAL RATE
     Route: 040
  15. HYDROMORPHONE [Concomitant]
     Active Substance: HYDROMORPHONE
     Indication: Cancer pain
     Dosage: UNK, ON A BOLUS-ONLY
     Route: 040
  16. HYDROMORPHONE [Concomitant]
     Active Substance: HYDROMORPHONE
     Dosage: 2.5 MILLIGRAM, PRN, Q10 MINUTES (NO BASAL RATE)
     Route: 040
  17. HYDROMORPHONE [Concomitant]
     Active Substance: HYDROMORPHONE
     Dosage: 9.8 MILLIGRAM, QD
     Route: 037
  18. BUPIVACAINE [Concomitant]
     Active Substance: BUPIVACAINE
     Indication: Cancer pain
     Dosage: 6.5 MILLIGRAM, QD
     Route: 037

REACTIONS (6)
  - Ewing^s sarcoma metastatic [Fatal]
  - Hoigne^s syndrome [Recovering/Resolving]
  - Spinal cord compression [Unknown]
  - Hypoaesthesia oral [Recovering/Resolving]
  - Anxiety [Recovering/Resolving]
  - Delirium [Recovering/Resolving]
